FAERS Safety Report 7762839-4 (Version None)
Quarter: 2011Q3

REPORT INFORMATION
  Report Type: 
  Country: None (occurrence: None)
  Receive Date: 20110920
  Receipt Date: 20110915
  Transmission Date: 20111222
  Serious: Yes (Other)
  Sender: FDA-Public Use
  Company Number: US-MERCK-1109USA01605

PATIENT
  Sex: Female

DRUGS (2)
  1. VYTORIN [Suspect]
     Indication: BLOOD CHOLESTEROL INCREASED
     Route: 048
     Dates: start: 20100101
  2. ACIPHEX [Concomitant]
     Route: 065

REACTIONS (4)
  - PAIN [None]
  - HEPATIC NECROSIS [None]
  - ARTHRALGIA [None]
  - BREAST CANCER [None]
